FAERS Safety Report 16618653 (Version 1)
Quarter: 2019Q3

REPORT INFORMATION
  Report Type: Spontaneous
  Country: US (occurrence: US)
  Receive Date: 20190723
  Receipt Date: 20190723
  Transmission Date: 20191004
  Serious: No
  Sender: FDA-Public Use
  Company Number: US-TEVA-2019-US-1080998

PATIENT
  Sex: Female

DRUGS (1)
  1. FAMOTIDINE. [Suspect]
     Active Substance: FAMOTIDINE
     Route: 065
     Dates: start: 201804

REACTIONS (5)
  - Tinnitus [Unknown]
  - Product contamination [Unknown]
  - Headache [Unknown]
  - Hypoacusis [Unknown]
  - Dizziness [Unknown]

NARRATIVE: CASE EVENT DATE: 201804
